FAERS Safety Report 11228251 (Version 1)
Quarter: 2015Q2

REPORT INFORMATION
  Report Type: Spontaneous
  Country: US (occurrence: US)
  Receive Date: 20150630
  Receipt Date: 20150630
  Transmission Date: 20150821
  Serious: Yes (Hospitalization, Other)
  Sender: FDA-Public Use
  Company Number: US-009507513-1506USA014153

PATIENT
  Age: 22 Year
  Sex: Male

DRUGS (1)
  1. CLINORIL [Suspect]
     Active Substance: SULINDAC
     Dosage: 100 DF, ONCE
     Route: 048

REACTIONS (5)
  - Suicide attempt [Unknown]
  - Skin necrosis [Recovering/Resolving]
  - Acute kidney injury [Recovering/Resolving]
  - Overdose [Unknown]
  - Hyperbilirubinaemia [Recovered/Resolved]
